FAERS Safety Report 6223542-5 (Version None)
Quarter: 2009Q2

REPORT INFORMATION
  Report Type: 
  Country: None (occurrence: None)
  Receive Date: 20090610
  Receipt Date: 20090601
  Transmission Date: 20091009
  Serious: Yes (Hospitalization)
  Sender: FDA-Public Use
  Company Number: 2009US001563

PATIENT
  Age: 28 Year
  Sex: Male

DRUGS (33)
  1. ALEFACEPT(ALEFACEPT) INJECTION [Suspect]
     Indication: RENAL TRANSPLANT
     Dosage: 7.5 MG, UID/QD; IV NOS
     Route: 042
     Dates: start: 20090426, end: 20090426
  2. ALEFACEPT(ALEFACEPT) INJECTION [Suspect]
     Indication: RENAL TRANSPLANT
     Dosage: 7.5 MG, UID/QD; IV NOS
     Route: 042
     Dates: start: 20090429, end: 20090429
  3. ALEFACEPT(ALEFACEPT) INJECTION [Suspect]
     Indication: RENAL TRANSPLANT
     Dosage: 7.5 MG, UID/QD; IV NOS
     Route: 042
     Dates: start: 20090504
  4. . [Concomitant]
  5. PROGRAF [Suspect]
     Indication: RENAL TRANSPLANT
     Dosage: SEE IMAGE
     Route: 048
     Dates: start: 20090426, end: 20090426
  6. PROGRAF [Suspect]
     Indication: RENAL TRANSPLANT
     Dosage: SEE IMAGE
     Route: 048
     Dates: start: 20090427, end: 20090429
  7. PROGRAF [Suspect]
     Indication: RENAL TRANSPLANT
     Dosage: SEE IMAGE
     Route: 048
     Dates: start: 20090430, end: 20090430
  8. PROGRAF [Suspect]
     Indication: RENAL TRANSPLANT
     Dosage: SEE IMAGE
     Route: 048
     Dates: start: 20090501, end: 20090503
  9. PROGRAF [Suspect]
     Indication: RENAL TRANSPLANT
     Dosage: SEE IMAGE
     Route: 048
     Dates: start: 20090504, end: 20090504
  10. PROGRAF [Suspect]
     Indication: RENAL TRANSPLANT
     Dosage: SEE IMAGE
     Route: 048
     Dates: start: 20090505, end: 20090505
  11. PROGRAF [Suspect]
     Indication: RENAL TRANSPLANT
     Dosage: SEE IMAGE
     Route: 048
     Dates: start: 20090506, end: 20090506
  12. PROGRAF [Suspect]
     Indication: RENAL TRANSPLANT
     Dosage: SEE IMAGE
     Route: 048
     Dates: start: 20090507, end: 20090507
  13. PROGRAF [Suspect]
     Indication: RENAL TRANSPLANT
     Dosage: SEE IMAGE
     Route: 048
     Dates: start: 20090508, end: 20090508
  14. PROGRAF [Suspect]
     Indication: RENAL TRANSPLANT
     Dosage: SEE IMAGE
     Route: 048
     Dates: start: 20090509, end: 20090526
  15. PROGRAF [Suspect]
     Indication: RENAL TRANSPLANT
     Dosage: SEE IMAGE
     Route: 048
     Dates: start: 20090527
  16. CELLCEPT [Concomitant]
  17. PREDNISOLONE [Concomitant]
  18. CARVEDILOL [Concomitant]
  19. LASIX [Concomitant]
  20. ACYCLOVIR [Concomitant]
  21. BACTRIM [Concomitant]
  22. COLACE (DOCUSATE SODIUM) [Concomitant]
  23. NEXIUM (ESOMEPRAZOLE SODIUM) [Concomitant]
  24. SIMVASTATIN [Concomitant]
  25. ZETIA [Concomitant]
  26. ASPIRIN [Concomitant]
  27. TRILEPTAL [Concomitant]
  28. ZYRTEC [Concomitant]
  29. LYRICA [Concomitant]
  30. FERROUS SULFATE TAB [Concomitant]
  31. FOLIC ACID [Concomitant]
  32. CYMBALTA [Concomitant]
  33. PERCOCET [Concomitant]

REACTIONS (5)
  - ANAEMIA [None]
  - COMPLICATIONS OF TRANSPLANTED KIDNEY [None]
  - FOCAL SEGMENTAL GLOMERULOSCLEROSIS [None]
  - HYPOGLYCAEMIA [None]
  - KIDNEY TRANSPLANT REJECTION [None]
